FAERS Safety Report 13819984 (Version 1)
Quarter: 2017Q3

REPORT INFORMATION
  Report Type: Spontaneous
  Country: US (occurrence: US)
  Receive Date: 20170801
  Receipt Date: 20170801
  Transmission Date: 20171127
  Serious: No
  Sender: FDA-Public Use
  Company Number: US-GLAXOSMITHKLINE-US2017117872

PATIENT
  Age: 50 Year
  Sex: Female

DRUGS (4)
  1. SORIATANE [Suspect]
     Active Substance: ACITRETIN
     Dosage: 1 DF, BID
     Route: 048
     Dates: start: 201706
  2. SORIATANE [Suspect]
     Active Substance: ACITRETIN
     Indication: PSORIASIS
     Dosage: 2 DF, QD
     Route: 048
     Dates: start: 2017, end: 201706
  3. INVOKANA [Concomitant]
     Active Substance: CANAGLIFLOZIN
  4. METFORMIN [Concomitant]
     Active Substance: METFORMIN HYDROCHLORIDE

REACTIONS (5)
  - Chapped lips [Recovering/Resolving]
  - Photosensitivity reaction [Recovering/Resolving]
  - Alopecia [Recovering/Resolving]
  - Lip exfoliation [Recovering/Resolving]
  - Product use issue [Unknown]

NARRATIVE: CASE EVENT DATE: 201706
